FAERS Safety Report 24802715 (Version 1)
Quarter: 2025Q1

REPORT INFORMATION
  Report Type: Spontaneous
  Country: US (occurrence: US)
  Receive Date: 20250103
  Receipt Date: 20250103
  Transmission Date: 20250409
  Serious: No
  Sender: AMGEN
  Company Number: US-AMGEN-USASP2024255736

PATIENT
  Age: 68 Year
  Sex: Female

DRUGS (4)
  1. AIMOVIG [Suspect]
     Active Substance: ERENUMAB-AOOE
     Indication: Product used for unknown indication
     Dosage: 140 MILLIGRAM, QMO (ONCE PER MONTH)
     Route: 058
     Dates: start: 2024, end: 2024
  2. AIMOVIG [Suspect]
     Active Substance: ERENUMAB-AOOE
     Dosage: 140 MILLIGRAM, QMO (ONCE PER MONTH)
     Route: 058
     Dates: start: 20241229
  3. AIMOVIG [Suspect]
     Active Substance: ERENUMAB-AOOE
     Dosage: 140 MILLIGRAM, QMO (ONCE PER MONTH)
     Route: 058
     Dates: start: 20241229
  4. AIMOVIG [Suspect]
     Active Substance: ERENUMAB-AOOE
     Dosage: 140 MILLIGRAM, QMO (ONCE PER MONTH)
     Route: 058
     Dates: start: 20241229

REACTIONS (3)
  - Device difficult to use [Unknown]
  - Drug dose omission by device [Unknown]
  - Drug ineffective [Unknown]

NARRATIVE: CASE EVENT DATE: 20240101
